FAERS Safety Report 18767362 (Version 1)
Quarter: 2021Q1

REPORT INFORMATION
  Report Type: Spontaneous
  Country: US (occurrence: US)
  Receive Date: 20210114
  Receipt Date: 20210114
  Transmission Date: 20210419
  Serious: No
  Sender: FDA-Public Use
  Company Number: None

PATIENT
  Sex: Female
  Weight: 54.43 kg

DRUGS (2)
  1. LEVEN CANNABIDIOL 1500MG CBD SERUM [Suspect]
     Active Substance: CANNABIDIOL\HERBALS
     Indication: ANXIETY
     Route: 048
     Dates: start: 20200901, end: 20201101
  2. LEVEN CANNABIDIOL 1500MG CBD SERUM [Suspect]
     Active Substance: CANNABIDIOL\HERBALS
     Indication: ARTHRITIS
     Route: 048
     Dates: start: 20200901, end: 20201101

REACTIONS (11)
  - Illness [None]
  - Anxiety [None]
  - Migraine with aura [None]
  - Inappropriate release of product for distribution [None]
  - Product packaging issue [None]
  - Intentional product use issue [None]
  - Product lot number issue [None]
  - Diarrhoea [None]
  - Heart rate abnormal [None]
  - Malaise [None]
  - Product compounding quality issue [None]
